FAERS Safety Report 14403401 (Version 1)
Quarter: 2018Q1

REPORT INFORMATION
  Report Type: Spontaneous
  Country: US (occurrence: US)
  Receive Date: 20180116
  Receipt Date: 20180116
  Transmission Date: 20180509
  Serious: Yes (Hospitalization)
  Sender: FDA-Public Use
  Company Number: None

PATIENT
  Age: 81 Year
  Sex: Male

DRUGS (14)
  1. FLOMAX [Concomitant]
     Active Substance: TAMSULOSIN HYDROCHLORIDE
  2. VOTRIENT [Suspect]
     Active Substance: PAZOPANIB HYDROCHLORIDE
     Indication: RENAL CANCER
     Route: 048
     Dates: start: 20140328
  3. AMLODIPINE [Concomitant]
     Active Substance: AMLODIPINE BESYLATE
  4. POT CL MICRO [Concomitant]
  5. LOVASTATIN. [Concomitant]
     Active Substance: LOVASTATIN
  6. CYANOCOBALAM [Concomitant]
  7. MUCUSRELIEF [Concomitant]
  8. CLONIDINE. [Concomitant]
     Active Substance: CLONIDINE
  9. XARELTO [Concomitant]
     Active Substance: RIVAROXABAN
  10. CLOTRIMAZOLE. [Concomitant]
     Active Substance: CLOTRIMAZOLE
  11. POTASSIUM [Concomitant]
     Active Substance: POTASSIUM
  12. CHLORTHALID [Concomitant]
  13. ALPRAZOLAM. [Concomitant]
     Active Substance: ALPRAZOLAM
  14. PROAIR HFA AER [Concomitant]

REACTIONS (2)
  - Cerebrovascular accident [None]
  - Internal haemorrhage [None]

NARRATIVE: CASE EVENT DATE: 20171221
